FAERS Safety Report 18173665 (Version 4)
Quarter: 2020Q4

REPORT INFORMATION
  Report Type: Report from Study
  Country: US (occurrence: US)
  Receive Date: 20200820
  Receipt Date: 20201113
  Transmission Date: 20210113
  Serious: Yes (Hospitalization)
  Sender: FDA-Public Use
  Company Number: US-BAXTER-2020BAX016759

PATIENT
  Age: 21 Year
  Sex: Male
  Weight: 95.3 kg

DRUGS (15)
  1. VINCRISTINE [Suspect]
     Active Substance: VINCRISTINE
     Indication: ACUTE LYMPHOCYTIC LEUKAEMIA
     Dosage: FIRST DOSE, DAY 1, 8, 15, DAY 43, 50
     Route: 042
     Dates: start: 20200619
  2. CYTARABINE. [Suspect]
     Active Substance: CYTARABINE
     Indication: ACUTE LYMPHOCYTIC LEUKAEMIA
     Dosage: FIRST DOSE, DAYS 29-32-4, DAYS 36-39, ROUTE: IV OR SC
     Route: 065
     Dates: start: 20200717
  3. DEXAMETHASONE. [Suspect]
     Active Substance: DEXAMETHASONE
     Indication: ACUTE LYMPHOCYTIC LEUKAEMIA
     Dosage: FIRST DOSE, DOSAGE FORM: TABLET, DAY 1-7, DAYS 15-21
     Route: 048
     Dates: start: 20200619
  4. DOXIL [Suspect]
     Active Substance: DOXORUBICIN HYDROCHLORIDE
     Indication: ACUTE LYMPHOCYTIC LEUKAEMIA
     Dosage: FIRST DOSE, DAY 1, DAY 8, DAY 15
     Route: 042
     Dates: start: 20200619
  5. VINCRISTINE [Suspect]
     Active Substance: VINCRISTINE
     Dosage: LAST DOSE PRIOR TO SAE
     Route: 042
     Dates: start: 20200731, end: 20200731
  6. METHOTREXATE. [Suspect]
     Active Substance: METHOTREXATE
     Indication: ACUTE LYMPHOCYTIC LEUKAEMIA
     Dosage: FIRST DOSE, DAY 1, DAY 29, DAY 36
     Route: 037
     Dates: start: 20200619
  7. DOXIL [Suspect]
     Active Substance: DOXORUBICIN HYDROCHLORIDE
     Dosage: LAST DOSE PRIOR TO SAE
     Route: 042
     Dates: start: 20200702, end: 20200702
  8. INCB018424 [Suspect]
     Active Substance: RUXOLITINIB
     Indication: ACUTE LYMPHOCYTIC LEUKAEMIA
     Dosage: FIRST DOSE, DOSAGE FORM: TABLET, FOR 14 DAYS, DAY 1 AND DAY 29
     Route: 048
     Dates: start: 20200619
  9. CYTARABINE. [Suspect]
     Active Substance: CYTARABINE
     Dosage: LAST DOSE PRIOR TO SAE, ROUTE: IV OR SC
     Route: 065
     Dates: start: 20200727, end: 20200727
  10. THIOGUANINE [Suspect]
     Active Substance: THIOGUANINE
     Indication: ACUTE LYMPHOCYTIC LEUKAEMIA
     Dosage: FIRST DOSE, 120 MG FOR 5 DAYS AND 140 MG FOR 2 DAYS (DAY 29-42), DOSAGE FORM: TABLET
     Route: 048
     Dates: start: 20200717
  11. THIOGUANINE [Suspect]
     Active Substance: THIOGUANINE
     Dosage: LAST DOSE PRIOR TO SAE, DOSAGE FORM: TABLET
     Route: 048
     Dates: start: 20200730, end: 20200730
  12. CYCLOPHOSPHAMIDE FOR INJECTION, USP [Suspect]
     Active Substance: CYCLOPHOSPHAMIDE
     Indication: ACUTE LYMPHOCYTIC LEUKAEMIA
     Dosage: FIRST DOSES AND LAST DOSE PRIOR TO SAE, DAY 29
     Route: 042
     Dates: start: 20200717, end: 20200717
  13. DEXAMETHASONE. [Suspect]
     Active Substance: DEXAMETHASONE
     Dosage: DOSAGE FORM: TABLET, LAST DOSE PRIOR TO SAE
     Route: 048
     Dates: start: 20200625, end: 20200625
  14. METHOTREXATE. [Suspect]
     Active Substance: METHOTREXATE
     Dosage: LAST DOSE PRIOR TO SAE
     Route: 037
     Dates: start: 20200724, end: 20200724
  15. INCB018424 [Suspect]
     Active Substance: RUXOLITINIB
     Dosage: LAST DOSE PRIOR TO SAE, DOSAGE FORM: TABLET
     Route: 048
     Dates: start: 20200730, end: 20200730

REACTIONS (1)
  - Febrile neutropenia [Recovered/Resolved]

NARRATIVE: CASE EVENT DATE: 20200801
